FAERS Safety Report 25876092 (Version 1)
Quarter: 2025Q4

REPORT INFORMATION
  Report Type: Report from Study
  Country: US (occurrence: US)
  Receive Date: 20251003
  Receipt Date: 20251003
  Transmission Date: 20260117
  Serious: Yes (Hospitalization)
  Sender: RECORDATI
  Company Number: US-ORPHANEU-2025006928

PATIENT
  Age: 68 Year
  Sex: Female
  Weight: 64.689 kg

DRUGS (11)
  1. ISTURISA [Suspect]
     Active Substance: OSILODROSTAT PHOSPHATE
     Indication: Cushing^s syndrome
     Dosage: 3 MG, BID
     Route: 048
     Dates: start: 20250913, end: 20250918
  2. ISTURISA [Suspect]
     Active Substance: OSILODROSTAT PHOSPHATE
     Dosage: 4 MILLIGRAM, BID
     Route: 048
     Dates: start: 20250919
  3. ALPRAZOLAM [Concomitant]
     Active Substance: ALPRAZOLAM
     Indication: Product used for unknown indication
     Dosage: 0.5 MILLIGRAM, BID, TABLET 0.5 MG
     Route: 048
     Dates: start: 20250901
  4. CLONIDINE HYDROCHLORIDE [Concomitant]
     Active Substance: CLONIDINE HYDROCHLORIDE
     Indication: Product used for unknown indication
     Dosage: 0.1 MILLIGRAM, TID, TABLET 0.1 MG
     Route: 048
     Dates: start: 20250901
  5. EPLERENONE [Concomitant]
     Active Substance: EPLERENONE
     Indication: Product used for unknown indication
     Dosage: 150 MILLIGRAM, BID, TABLET 50 MG
     Route: 048
     Dates: start: 20250901
  6. KETOCONAZOLE [Concomitant]
     Active Substance: KETOCONAZOLE
     Indication: Product used for unknown indication
     Dosage: 200 MILLIGRAM, TID, TABLET 200 MG
     Route: 048
     Dates: start: 20250901
  7. NIFEDIPINE [Concomitant]
     Active Substance: NIFEDIPINE
     Indication: Product used for unknown indication
     Dosage: 90 MILLIGRAM, DAILY, TABLET
     Route: 048
     Dates: start: 20250901
  8. ROXICODONE [Concomitant]
     Active Substance: OXYCODONE HYDROCHLORIDE
     Indication: Product used for unknown indication
     Dosage: 5 MG, PRN Q6H, TABLET 5 MG
     Route: 048
     Dates: start: 20250901
  9. CITRIC ACID\POTASSIUM BICARBONATE [Concomitant]
     Active Substance: CITRIC ACID MONOHYDRATE\POTASSIUM BICARBONATE
     Indication: Product used for unknown indication
     Dosage: 2 DOSAGE FORM, PRN, Q6H, TABLET EFFERVESCENT 20
     Route: 048
     Dates: start: 20250901
  10. SENOKOT-S [Concomitant]
     Active Substance: DOCUSATE SODIUM\SENNOSIDES
     Indication: Product used for unknown indication
     Dosage: 8.6-50 MILLIGRAM, BID, AS NEEDED, TABLET 8.6-50 MG
     Route: 048
     Dates: start: 20250901
  11. VALSARTAN [Concomitant]
     Active Substance: VALSARTAN
     Indication: Product used for unknown indication
     Dosage: 160 MILLIGRAM, QD, TABLET 160 MG
     Route: 048
     Dates: start: 20250901

REACTIONS (1)
  - Infection [Not Recovered/Not Resolved]

NARRATIVE: CASE EVENT DATE: 20250918
